FAERS Safety Report 10063173 (Version 2)
Quarter: 2014Q2

REPORT INFORMATION
  Report Type: Spontaneous
  Country: US (occurrence: US)
  Receive Date: 20140407
  Receipt Date: 20140416
  Transmission Date: 20141212
  Serious: Yes (Hospitalization)
  Sender: FDA-Public Use
  Company Number: US-BAXTER-2014BAX015964

PATIENT
  Sex: Female

DRUGS (1)
  1. 0.9% SODIUM CHLORIDE INJECTION [Suspect]
     Indication: HAEMODIALYSIS
     Route: 010
     Dates: start: 20111030

REACTIONS (4)
  - Haemorrhage [Recovered/Resolved]
  - Vascular stenosis [Recovered/Resolved]
  - Contrast media allergy [Recovered/Resolved]
  - Bronchitis [Recovered/Resolved]
